FAERS Safety Report 12535138 (Version 1)
Quarter: 2016Q3

REPORT INFORMATION
  Report Type: Report from Study
  Country: US (occurrence: US)
  Receive Date: 20160707
  Receipt Date: 20160707
  Transmission Date: 20161109
  Serious: No
  Sender: FDA-Public Use
  Company Number: US-009507513-2005-126324-NL

PATIENT
  Sex: Female

DRUGS (6)
  1. LEUPROLIDE ACETATE. [Concomitant]
     Active Substance: LEUPROLIDE ACETATE
     Indication: ASSISTED FERTILISATION
     Dosage: DOSE TEXT: INJECTED IN TO THE THIGH OR ARM, CONTINUING FOR { 20 DAYS
     Route: 058
  2. PROGESTERONE. [Concomitant]
     Active Substance: PROGESTERONE
     Indication: ASSISTED FERTILISATION
     Dosage: DOSE TEXT: BEGINNING TWO OR THREE DAYS AFTER OOCYTE RETRIEVEL
     Route: 030
  3. CRINONE [Concomitant]
     Active Substance: PROGESTERONE
     Indication: ASSISTED FERTILISATION
     Dosage: DOSE TEXT: BEGINNING TO OR THREE DAYS AFTER OOCYTE RETRIEVAL
  4. FOLLISTIM [Suspect]
     Active Substance: FOLLITROPIN
     Indication: IN VITRO FERTILISATION
     Dosage: 225 IU, QD
     Route: 058
  5. BRAVELLE [Suspect]
     Active Substance: FOLLITROPIN\UROFOLLITROPIN
     Indication: IN VITRO FERTILISATION
     Dosage: 225 IU, QD
     Route: 058
  6. NOVAREL [Concomitant]
     Active Substance: CHORIOGONADOTROPIN ALFA
     Dosage: DOSE TEXT: 1 DAY AFTER FINAL DOSE OF GONADOTROPIN
     Route: 030

REACTIONS (6)
  - Pelvic pain [Unknown]
  - Nausea [Unknown]
  - Muscle spasms [Unknown]
  - Headache [Unknown]
  - Abdominal pain [Unknown]
  - Vaginal haemorrhage [Unknown]
